FAERS Safety Report 17568958 (Version 5)
Quarter: 2021Q1

REPORT INFORMATION
  Report Type: Spontaneous
  Country: US (occurrence: US)
  Receive Date: 20200321
  Receipt Date: 20210210
  Transmission Date: 20210419
  Serious: Yes (Other)
  Sender: FDA-Public Use
  Company Number: NVSC2020US070609

PATIENT
  Sex: Female

DRUGS (1)
  1. KYMRIAH [Suspect]
     Active Substance: TISAGENLECLEUCEL
     Indication: ACUTE LYMPHOCYTIC LEUKAEMIA
     Dosage: 2.1 X 10E6 CAR+ T CELLS/K, ONCE/SINGLE
     Route: 041
     Dates: start: 20210113

REACTIONS (6)
  - Eye disorder [Unknown]
  - B-cell aplasia [Unknown]
  - Acute lymphocytic leukaemia recurrent [Unknown]
  - Bone marrow disorder [Unknown]
  - Malignant neoplasm progression [Unknown]
  - Nervous system disorder [Unknown]

NARRATIVE: CASE EVENT DATE: 20200406
